FAERS Safety Report 24427515 (Version 10)
Quarter: 2025Q4

REPORT INFORMATION
  Report Type: Spontaneous
  Country: US (occurrence: US)
  Receive Date: 20241011
  Receipt Date: 20251124
  Transmission Date: 20260118
  Serious: No
  Sender: SANOFI AVENTIS
  Company Number: US-SA-2024SA290731

PATIENT
  Age: 57 Year
  Sex: Male

DRUGS (2)
  1. DUPIXENT [Suspect]
     Active Substance: DUPILUMAB
     Indication: Dermatitis atopic
     Dosage: 600 MG, 1X
     Route: 058
     Dates: start: 20240829, end: 20240829
  2. DUPIXENT [Suspect]
     Active Substance: DUPILUMAB
     Dosage: 300 MG, QOW
     Route: 058
     Dates: start: 202409

REACTIONS (15)
  - Bone growth stimulation [Unknown]
  - Allergy to chemicals [Unknown]
  - Initial insomnia [Unknown]
  - General physical health deterioration [Unknown]
  - Mental disorder [Unknown]
  - Ocular hyperaemia [Unknown]
  - Pruritus [Unknown]
  - Back pain [Unknown]
  - Urticaria [Unknown]
  - Eye irritation [Recovering/Resolving]
  - Injection site swelling [Unknown]
  - Rash [Recovering/Resolving]
  - Dry eye [Not Recovered/Not Resolved]
  - Eczema [Unknown]
  - Dermatitis atopic [Unknown]

NARRATIVE: CASE EVENT DATE: 20240101
